FAERS Safety Report 10582897 (Version 1)
Quarter: 2014Q4

REPORT INFORMATION
  Report Type: Spontaneous
  Country: FR (occurrence: FR)
  Receive Date: 20141114
  Receipt Date: 20141114
  Transmission Date: 20150529
  Serious: Yes (Death)
  Sender: FDA-Public Use
  Company Number: FR-ROCHE-1487642

PATIENT
  Age: 88 Year
  Sex: Female

DRUGS (2)
  1. HERCEPTIN [Suspect]
     Active Substance: TRASTUZUMAB
     Indication: BREAST CANCER
     Route: 042
     Dates: start: 2014
  2. XELODA [Suspect]
     Active Substance: CAPECITABINE
     Indication: BREAST CANCER
     Route: 048
     Dates: start: 2014

REACTIONS (5)
  - Dehydration [Fatal]
  - Septic shock [Fatal]
  - Diarrhoea [Fatal]
  - Vomiting [Fatal]
  - Bone marrow failure [Fatal]

NARRATIVE: CASE EVENT DATE: 201406
